FAERS Safety Report 7536622-9 (Version None)
Quarter: 2011Q2

REPORT INFORMATION
  Report Type: 
  Country: None (occurrence: None)
  Receive Date: 20110608
  Receipt Date: 20110608
  Transmission Date: 20111010
  Serious: No
  Sender: FDA-Public Use
  Company Number: None

PATIENT
  Age: 58 Year
  Sex: Female
  Weight: 54.4316 kg

DRUGS (1)
  1. BONIVA [Suspect]
     Indication: BONE DISORDER
     Dosage: 150 MG ONCE A MONTH PO
     Route: 048
     Dates: start: 20110201, end: 20110501

REACTIONS (5)
  - TOOTHACHE [None]
  - PARAESTHESIA ORAL [None]
  - SENSATION OF HEAVINESS [None]
  - PAIN IN JAW [None]
  - JOINT STIFFNESS [None]
